FAERS Safety Report 13055103 (Version 1)
Quarter: 2016Q4

REPORT INFORMATION
  Report Type: Spontaneous
  Country: US (occurrence: US)
  Receive Date: 20161222
  Receipt Date: 20161222
  Transmission Date: 20170207
  Serious: No
  Sender: FDA-Public Use
  Company Number: US-PFIZER INC-2016586988

PATIENT
  Age: 24 Year
  Sex: Female
  Weight: 65.77 kg

DRUGS (2)
  1. LYRICA [Suspect]
     Active Substance: PREGABALIN
     Dosage: 100 MG, 2X/DAY
     Dates: start: 20161116, end: 20161213
  2. LYRICA [Suspect]
     Active Substance: PREGABALIN
     Dosage: 150 MG, 3X/DAY (150MG CAPSULES AND TAKES 1 EVERY 8 HOURS)

REACTIONS (6)
  - Product use issue [Unknown]
  - Anxiety [Recovered/Resolved]
  - Somnolence [Recovered/Resolved]
  - Feeling drunk [Recovered/Resolved]
  - Drug prescribing error [Unknown]
  - Panic reaction [Recovered/Resolved]

NARRATIVE: CASE EVENT DATE: 201611
